FAERS Safety Report 26174631 (Version 1)
Quarter: 2025Q4

REPORT INFORMATION
  Report Type: Spontaneous
  Country: US (occurrence: US)
  Receive Date: 20251218
  Receipt Date: 20251218
  Transmission Date: 20260118
  Serious: No
  Sender: MERCK SHARP & DOHME LLC
  Company Number: US-009507513-2356419

PATIENT
  Age: 77 Year
  Sex: Female

DRUGS (3)
  1. PEMBROLIZUMAB [Suspect]
     Active Substance: PEMBROLIZUMAB
  2. carboplatin/etopside [Concomitant]
     Indication: Neuroendocrine carcinoma of the skin
  3. carboplatin/etoposide [Concomitant]
     Indication: Neuroendocrine carcinoma of the skin

REACTIONS (1)
  - Drug ineffective [Unknown]
